FAERS Safety Report 20983631 (Version 1)
Quarter: 2022Q2

REPORT INFORMATION
  Report Type: Report from Study
  Country: ES (occurrence: ES)
  Receive Date: 20220620
  Receipt Date: 20220620
  Transmission Date: 20220721
  Serious: Yes (Hospitalization)
  Sender: FDA-Public Use
  Company Number: ES-JNJFOC-20220627865

PATIENT
  Sex: Male

DRUGS (1)
  1. IMBRUVICA [Suspect]
     Active Substance: IBRUTINIB
     Indication: Chronic lymphocytic leukaemia
     Route: 048
     Dates: start: 20170802, end: 20220613

REACTIONS (3)
  - Blood pressure abnormal [Unknown]
  - Cardiac disorder [Unknown]
  - Renal disorder [Unknown]

NARRATIVE: CASE EVENT DATE: 20220525
